FAERS Safety Report 6690603-6 (Version None)
Quarter: 2010Q2

REPORT INFORMATION
  Report Type: 
  Country: None (occurrence: None)
  Receive Date: 20100421
  Receipt Date: 20100415
  Transmission Date: 20101027
  Serious: Yes (Other)
  Sender: FDA-Public Use
  Company Number: B0648130A

PATIENT
  Age: 60 Year
  Sex: Male

DRUGS (1)
  1. ALKERAN [Suspect]
     Indication: DRUG USE FOR UNKNOWN INDICATION
     Dosage: 400MGM2 PER DAY
     Route: 042
     Dates: start: 20100412, end: 20100413

REACTIONS (2)
  - NEUROTOXICITY [None]
  - OVERDOSE [None]
